FAERS Safety Report 8507787-7 (Version None)
Quarter: 2012Q3

REPORT INFORMATION
  Report Type: 
  Country: None (occurrence: None)
  Receive Date: 20120709
  Receipt Date: 20120709
  Transmission Date: 20120928
  Serious: Yes (Life-Threatening)
  Sender: FDA-Public Use
  Company Number: None

PATIENT
  Age: 56 Year
  Sex: Male
  Weight: 107 kg

DRUGS (3)
  1. . [Concomitant]
  2. PRADAXA [Suspect]
     Indication: DRUG THERAPY
     Dosage: 1 CAPSULE, TWICE DAILY, PO
     Route: 048
     Dates: start: 20120705, end: 20120707
  3. PRADAXA [Suspect]
     Indication: ATRIAL FIBRILLATION
     Dosage: 1 CAPSULE, TWICE DAILY, PO
     Route: 048
     Dates: start: 20120705, end: 20120707

REACTIONS (4)
  - CHILLS [None]
  - DYSPNOEA [None]
  - ABDOMINAL PAIN [None]
  - HEADACHE [None]
